FAERS Safety Report 20725699 (Version 1)
Quarter: 2022Q2

REPORT INFORMATION
  Report Type: Spontaneous
  Country: US (occurrence: None)
  Receive Date: 20220419
  Receipt Date: 20220419
  Transmission Date: 20220721
  Serious: Yes (Hospitalization, Disabling, Other)
  Sender: FDA-Public Use
  Company Number: None

PATIENT
  Age: 35 Year
  Sex: Female
  Weight: 81 kg

DRUGS (3)
  1. DERMA E ULTRA SHEER MINERAL BODY SUNSCREEN MIST SPF 30 [Suspect]
     Active Substance: TITANIUM DIOXIDE\ZINC OXIDE
     Indication: Prophylaxis against solar radiation
     Dosage: OTHER STRENGTH : SPF;?
     Route: 061
     Dates: start: 20210619, end: 20210619
  2. IRON [Concomitant]
     Active Substance: IRON
  3. women^s multivitamin [Concomitant]

REACTIONS (1)
  - Third degree chemical burn of skin [None]

NARRATIVE: CASE EVENT DATE: 20210619
